FAERS Safety Report 23260807 (Version 9)
Quarter: 2024Q4

REPORT INFORMATION
  Report Type: Spontaneous
  Country: CA (occurrence: CA)
  Receive Date: 20231205
  Receipt Date: 20241206
  Transmission Date: 20250114
  Serious: Yes (Other)
  Sender: CELLTRION
  Company Number: CA-CELLTRION INC.-2023CA022205

PATIENT

DRUGS (16)
  1. INFLECTRA [Suspect]
     Active Substance: INFLIXIMAB-DYYB
     Indication: Crohn^s disease
     Dosage: 635 MG, WK 0 (INDUCTION WEEK 0,2,6 THEN MAINTENANCE EVERY 8 WKS) (5MG/KG)
     Route: 042
     Dates: start: 20231108, end: 20231108
  2. INFLECTRA [Suspect]
     Active Substance: INFLIXIMAB-DYYB
     Dosage: 635 MG (5 MG/KG), WEEK 2 DOSE, AFTER 2 WEEKS AND 2 DAYS
     Route: 042
     Dates: start: 20231124
  3. INFLECTRA [Suspect]
     Active Substance: INFLIXIMAB-DYYB
     Dosage: 640 MG (5 MG/KG), WEEK 6 DOSE, AFTER 4 WEEKS
     Route: 042
     Dates: start: 20231218
  4. INFLECTRA [Suspect]
     Active Substance: INFLIXIMAB-DYYB
     Dosage: 5 MG/KG, EVERY 8 WEEKS
     Route: 042
     Dates: start: 20240214
  5. INFLECTRA [Suspect]
     Active Substance: INFLIXIMAB-DYYB
     Dosage: 680 MG (5 MG/KG), AFTER 7 WEEKS AND 5 DAYS (PRESCRIBED EVERY 8 WEEKS)
     Route: 042
     Dates: start: 20240408
  6. INFLECTRA [Suspect]
     Active Substance: INFLIXIMAB-DYYB
     Dosage: 680 MG (5 MG/KG), AFTER 7 WEEKS AND 5 DAYS (PRESCRIBED EVERY 8 WEEKS)
     Route: 042
     Dates: start: 20240408
  7. INFLECTRA [Suspect]
     Active Substance: INFLIXIMAB-DYYB
     Dosage: 665 MG (5MG/KG), AFTER 8 WEEKS AND 2 DAYS (PRESCRIBED EVERY 8 WEEKS)
     Route: 042
     Dates: start: 20240605, end: 20240605
  8. INFLECTRA [Suspect]
     Active Substance: INFLIXIMAB-DYYB
     Dosage: 660 MG (5MG/KG), EVERY 6 WEEKS
     Route: 042
     Dates: start: 20240717
  9. INFLECTRA [Suspect]
     Active Substance: INFLIXIMAB-DYYB
     Dosage: 655 MG (5MG/KG), AFTER 7 WEEKS AND 1 DAY (PRESCRIBED EVERY 6 WEEKS)
     Route: 042
     Dates: start: 20240905, end: 20240905
  10. INFLECTRA [Suspect]
     Active Substance: INFLIXIMAB-DYYB
     Dosage: 655 MG (5MG/KG), EVERY 6 WEEKS
     Route: 042
     Dates: start: 20241017, end: 20241017
  11. INFLECTRA [Suspect]
     Active Substance: INFLIXIMAB-DYYB
     Dosage: 660 MG (5MG/KG), EVERY 6 WEEKS
     Route: 042
     Dates: start: 20241127
  12. CORTISONE [Concomitant]
     Active Substance: CORTISONE
     Dosage: UNK
  13. IRBESARTAN [Concomitant]
     Active Substance: IRBESARTAN
     Dosage: UNK
  14. PREDNISONE [Concomitant]
     Active Substance: PREDNISONE
     Dosage: 1 DF
  15. SOLIFENACIN [Concomitant]
     Active Substance: SOLIFENACIN
     Dosage: 5 MG
  16. TAMSULOSIN HYDROCHLORIDE [Concomitant]
     Active Substance: TAMSULOSIN HYDROCHLORIDE
     Dosage: 0.4 MG

REACTIONS (18)
  - Nephrolithiasis [Recovering/Resolving]
  - Blood pressure increased [Not Recovered/Not Resolved]
  - Condition aggravated [Recovered/Resolved]
  - Frequent bowel movements [Not Recovered/Not Resolved]
  - Weight increased [Not Recovered/Not Resolved]
  - Musculoskeletal stiffness [Not Recovered/Not Resolved]
  - Movement disorder [Not Recovered/Not Resolved]
  - Heart rate decreased [Not Recovered/Not Resolved]
  - Nasopharyngitis [Not Recovered/Not Resolved]
  - Arthralgia [Recovered/Resolved]
  - Urethritis [Recovered/Resolved]
  - Palpitations [Not Recovered/Not Resolved]
  - Fatigue [Not Recovered/Not Resolved]
  - Off label use [Unknown]
  - Intentional product use issue [Unknown]
  - Inappropriate schedule of product administration [Unknown]
  - Rhinorrhoea [Not Recovered/Not Resolved]
  - Heart rate irregular [Not Recovered/Not Resolved]

NARRATIVE: CASE EVENT DATE: 20231101
